FAERS Safety Report 17338885 (Version 1)
Quarter: 2020Q1

REPORT INFORMATION
  Report Type: Spontaneous
  Country: US (occurrence: US)
  Receive Date: 20200128
  Receipt Date: 20200128
  Transmission Date: 20200409
  Serious: Yes (Hospitalization)
  Sender: FDA-Public Use
  Company Number: None

PATIENT
  Age: 54 Year
  Sex: Male

DRUGS (13)
  1. ASA [Concomitant]
     Active Substance: ASPIRIN
  2. MARINOL [Concomitant]
     Active Substance: DRONABINOL
  3. ALBUTEROL INHALER [Concomitant]
     Active Substance: ALBUTEROL
  4. PROCHLORPERAZINE. [Concomitant]
     Active Substance: PROCHLORPERAZINE
  5. OXYCODONE [Concomitant]
     Active Substance: OXYCODONE
  6. BACLOFEN. [Concomitant]
     Active Substance: BACLOFEN
  7. BENZONATATE. [Concomitant]
     Active Substance: BENZONATATE
  8. NIVOLUMAB [Suspect]
     Active Substance: NIVOLUMAB
     Indication: SMALL CELL LUNG CANCER
     Dosage: ?          OTHER FREQUENCY:Q4WKS;?
     Route: 042
     Dates: start: 20191212, end: 20191212
  9. TIOTROPIUM-OLODATEROL INHALER [Concomitant]
  10. ZOFRAN [Concomitant]
     Active Substance: ONDANSETRON HYDROCHLORIDE
  11. RUCAPARIB [Suspect]
     Active Substance: RUCAPARIB
     Indication: SMALL CELL LUNG CANCER
     Route: 048
     Dates: start: 20191212, end: 20200108
  12. ATORVASTATIN [Concomitant]
     Active Substance: ATORVASTATIN
  13. BOOST [Concomitant]
     Active Substance: DIETARY SUPPLEMENT

REACTIONS (18)
  - Thrombocytopenia [None]
  - Pneumonia [None]
  - Productive cough [None]
  - Hyponatraemia [None]
  - Blood creatinine increased [None]
  - Hypoalbuminaemia [None]
  - Diarrhoea [None]
  - Abdominal pain upper [None]
  - Pyrexia [None]
  - Blood bilirubin increased [None]
  - Hypophagia [None]
  - Epstein-Barr virus test positive [None]
  - Sputum purulent [None]
  - Influenza [None]
  - Hypomagnesaemia [None]
  - Liver function test increased [None]
  - Aspartate aminotransferase increased [None]
  - Alanine aminotransferase increased [None]

NARRATIVE: CASE EVENT DATE: 20200113
